FAERS Safety Report 6117857-9 (Version None)
Quarter: 2009Q1

REPORT INFORMATION
  Report Type: 
  Country: None (occurrence: None)
  Receive Date: 20090314
  Receipt Date: 20090130
  Transmission Date: 20090719
  Serious: No
  Sender: FDA-Public Use
  Company Number: US-ABBOTT-09P-163-0500999-00

PATIENT
  Sex: Female

DRUGS (3)
  1. HUMIRA [Suspect]
     Indication: RHEUMATOID ARTHRITIS
     Route: 058
     Dates: start: 20051201, end: 20070630
  2. HUMIRA [Suspect]
     Dates: start: 20080630, end: 20081030
  3. HUMIRA [Suspect]
     Dates: start: 20081030

REACTIONS (3)
  - ARTHRALGIA [None]
  - JOINT SWELLING [None]
  - MOBILITY DECREASED [None]
